FAERS Safety Report 25548772 (Version 1)
Quarter: 2025Q3

REPORT INFORMATION
  Report Type: Spontaneous
  Country: US (occurrence: None)
  Receive Date: 20250711
  Receipt Date: 20250711
  Transmission Date: 20251020
  Serious: Yes (Death)
  Sender: FDA-CTU
  Company Number: None

PATIENT
  Age: 85 Year
  Sex: Male
  Weight: 81.65 kg

DRUGS (14)
  1. DUPIXENT [Suspect]
     Active Substance: DUPILUMAB
     Indication: Dermatitis atopic
     Dosage: OTHER QUANTITY : 300/2 MG/ML;?FREQUENCY : EVERY OTHER WEEK;?
     Route: 058
     Dates: start: 20231213, end: 20250630
  2. ACYCLOVIR [Concomitant]
     Active Substance: ACYCLOVIR
  3. ALPRAZOLAM [Concomitant]
     Active Substance: ALPRAZOLAM
  4. ASPIRIN [Concomitant]
     Active Substance: ASPIRIN
  5. ATORVASTATIN [Concomitant]
     Active Substance: ATORVASTATIN
  6. IRBESARTAN [Concomitant]
     Active Substance: IRBESARTAN
  7. MELATONIN [Concomitant]
     Active Substance: MELATONIN
  8. MIRTAZAPINE [Concomitant]
     Active Substance: MIRTAZAPINE
  9. MULTIVITAMIN ADULT 50+ [Concomitant]
  10. OMEPRAZOLE [Concomitant]
     Active Substance: OMEPRAZOLE
  11. PRESERVISION AREDS 2 + [Concomitant]
  12. PRIMIDONE [Concomitant]
     Active Substance: PRIMIDONE
  13. SUCRALFATE [Concomitant]
     Active Substance: SUCRALFATE
  14. TAMSULOSIN [Concomitant]
     Active Substance: TAMSULOSIN

REACTIONS (1)
  - Myocardial infarction [None]

NARRATIVE: CASE EVENT DATE: 20250630
